FAERS Safety Report 5476354-4 (Version None)
Quarter: 2007Q3

REPORT INFORMATION
  Report Type: 
  Country: None (occurrence: None)
  Receive Date: 20070914
  Receipt Date: 20070619
  Transmission Date: 20080115
  Serious: Yes (Other)
  Sender: FDA-Public Use
  Company Number: 07-169

PATIENT
  Age: 39 Year
  Sex: Female
  Weight: 49.8957 kg

DRUGS (3)
  1. ALEVE [Suspect]
     Indication: BACK PAIN
     Dosage: 220 MG, DAILY, ORAL
     Route: 048
     Dates: start: 20070613
  2. ALEVE [Suspect]
     Indication: SPINAL CORD INJURY
     Dosage: 220 MG, DAILY, ORAL
     Route: 048
     Dates: start: 20070613
  3. WALGREENS IRON TABLETS [Concomitant]

REACTIONS (4)
  - ASTHENIA [None]
  - DIARRHOEA [None]
  - HAEMATOCHEZIA [None]
  - HYPERHIDROSIS [None]
